FAERS Safety Report 9779673 (Version 2)
Quarter: 2014Q1

REPORT INFORMATION
  Report Type: Report from Study
  Country: DE (occurrence: DE)
  Receive Date: 20131223
  Receipt Date: 20140118
  Transmission Date: 20141002
  Serious: Yes (Hospitalization, Other)
  Sender: FDA-Public Use
  Company Number: DE-ABBVIE-13P-062-1180032-00

PATIENT
  Sex: Male

DRUGS (2)
  1. HUMIRA [Suspect]
     Indication: CROHN^S DISEASE
     Route: 058
     Dates: start: 20131002
  2. PANTOPRAZOLE [Concomitant]
     Dosage: THERAPY PAUSE
     Dates: end: 201310

REACTIONS (6)
  - Colectomy [Not Recovered/Not Resolved]
  - Colostomy [Not Recovered/Not Resolved]
  - Pain [Unknown]
  - Laboratory test abnormal [Unknown]
  - Large intestinal stenosis [Recovered/Resolved]
  - Hypophagia [Unknown]
